FAERS Safety Report 9155104 (Version 1)
Quarter: 2013Q1

REPORT INFORMATION
  Report Type: Report from Study
  Country: GB (occurrence: GB)
  Receive Date: 20130311
  Receipt Date: 20130311
  Transmission Date: 20140127
  Serious: Yes (Death)
  Sender: FDA-Public Use
  Company Number: GB-ROCHE-1200000

PATIENT
  Sex: Female

DRUGS (2)
  1. TOCILIZUMAB [Suspect]
     Indication: RHEUMATOID ARTHRITIS
     Route: 065
     Dates: start: 20101214, end: 20111128
  2. CYCLOSPORINE [Concomitant]
     Route: 065
     Dates: start: 20050704

REACTIONS (2)
  - Pancreatitis [Fatal]
  - Pulmonary embolism [Fatal]
